FAERS Safety Report 7150858 (Version 2)
Quarter: 2015Q3

REPORT INFORMATION
  Report Type: Spontaneous
  Country: AU (occurrence: AU)
  Receive Date: 20091016
  Receipt Date: 20150904
  Transmission Date: 20151125
  Serious: Yes (Death, Hospitalization)
  Sender: FDA-Public Use
  Company Number: AU-PFIZER INC-2009235998

PATIENT
  Age: 30 Year
  Sex: Male

DRUGS (1)
  1. CHAMPIX [Suspect]
     Active Substance: VARENICLINE TARTRATE
     Dosage: UNK
     Dates: start: 20080701

REACTIONS (4)
  - Suicide attempt [Recovered/Resolved]
  - Mood swings [Fatal]
  - Completed suicide [Fatal]
  - Aggression [Fatal]

NARRATIVE: CASE EVENT DATE: 2008
